FAERS Safety Report 9729297 (Version 1)
Quarter: 2013Q4

REPORT INFORMATION
  Report Type: Spontaneous
  Country: US (occurrence: US)
  Receive Date: 20131204
  Receipt Date: 20131204
  Transmission Date: 20140711
  Serious: Yes (Other)
  Sender: FDA-Public Use
  Company Number: US-BAYER-2013-147457

PATIENT
  Age: 36 Year
  Sex: Female
  Weight: 124 kg

DRUGS (6)
  1. YASMIN [Suspect]
  2. WELLBUTRIN XL [Concomitant]
     Dosage: 300 MG, UNK
     Dates: start: 20060320, end: 20071013
  3. SULFAMETHOXAZOLE W/TRIMETHOPRIM [Concomitant]
     Dosage: 800-160
     Dates: start: 20061230
  4. PHENAZOPYRIDINE [Concomitant]
     Dosage: 200 MG, UNK
     Dates: start: 20061230
  5. MULTIVITAMIN [Concomitant]
     Dosage: UNK
     Dates: start: 20070322
  6. IBUPROFEN [Concomitant]
     Dosage: UNK UNK, PRN
     Dates: start: 20070323

REACTIONS (1)
  - Pulmonary embolism [Recovered/Resolved]
